FAERS Safety Report 5868890-3 (Version None)
Quarter: 2008Q3

REPORT INFORMATION
  Report Type: 
  Country: None (occurrence: None)
  Receive Date: 20080902
  Receipt Date: 20080902
  Transmission Date: 20090109
  Serious: No
  Sender: FDA-Public Use
  Company Number: None

PATIENT
  Age: 35 Year
  Sex: Female
  Weight: 54.4316 kg

DRUGS (1)
  1. WELLBUTRIN [Suspect]
     Indication: SMOKING CESSATION THERAPY
     Dosage: 1 TWICE A DAY
     Dates: start: 20080827, end: 20080830

REACTIONS (8)
  - CARDIAC FLUTTER [None]
  - DECREASED ACTIVITY [None]
  - FEELING ABNORMAL [None]
  - FEELING JITTERY [None]
  - PRURITUS [None]
  - STARING [None]
  - TREMOR [None]
  - WITHDRAWAL SYNDROME [None]
